FAERS Safety Report 8557086-2 (Version None)
Quarter: 2012Q3

REPORT INFORMATION
  Report Type: 
  Country: None (occurrence: None)
  Receive Date: 20120801
  Receipt Date: 20120730
  Transmission Date: 20120928
  Serious: Yes (Hospitalization)
  Sender: FDA-Public Use
  Company Number: US-PFIZER INC-2012184241

PATIENT
  Sex: Male

DRUGS (1)
  1. RAPAMUNE [Suspect]
     Indication: CARDIAC DISORDER
     Dosage: 1 MG, DAILY
     Dates: start: 20030101

REACTIONS (1)
  - MYOCARDIAL INFARCTION [None]
